FAERS Safety Report 9320512 (Version 1)
Quarter: 2013Q2

REPORT INFORMATION
  Report Type: Spontaneous
  Country: US (occurrence: US)
  Receive Date: 20130531
  Receipt Date: 20130531
  Transmission Date: 20140414
  Serious: Yes (Other)
  Sender: FDA-Public Use
  Company Number: GXBR2013US001120

PATIENT
  Sex: Male

DRUGS (3)
  1. HYDRALAZINE [Suspect]
     Indication: HYPERTENSION
     Dosage: UNK MG, UNK
  2. RIBAVIRIN CAPSULES [Suspect]
     Indication: HEPATITIS C
     Dosage: UNK MG, UNK
  3. INTERFERON [Suspect]
     Indication: HEPATITIS C
     Dosage: UNK DF, UNK

REACTIONS (1)
  - Lupus-like syndrome [Recovering/Resolving]
